FAERS Safety Report 9279437 (Version 5)
Quarter: 2015Q2

REPORT INFORMATION
  Report Type: Spontaneous
  Country: US (occurrence: US)
  Receive Date: 20130508
  Receipt Date: 20150505
  Transmission Date: 20150821
  Serious: No
  Sender: FDA-Public Use
  Company Number: US-009507513-1305USA001560

PATIENT
  Sex: Male
  Weight: 92.63 kg

DRUGS (4)
  1. PROPECIA [Suspect]
     Active Substance: FINASTERIDE
     Indication: ANDROGENETIC ALOPECIA
     Dosage: 1 MG, QD
     Route: 048
     Dates: start: 20081008, end: 20090409
  2. MENS ROGAINE UNSCENTED FORMULA [Concomitant]
     Active Substance: MINOXIDIL
     Dosage: UNK
     Route: 061
     Dates: start: 20081008
  3. PROPECIA [Suspect]
     Active Substance: FINASTERIDE
     Indication: ALOPECIA
  4. OLUX-E [Concomitant]
     Active Substance: CLOBETASOL PROPIONATE
     Dosage: UNK, QD
     Route: 061
     Dates: start: 20081008

REACTIONS (18)
  - Sluggishness [Recovering/Resolving]
  - Pollakiuria [Unknown]
  - Depression [Not Recovered/Not Resolved]
  - Feeling hot [Unknown]
  - Testicular failure [Unknown]
  - Anxiety [Not Recovered/Not Resolved]
  - Cognitive disorder [Not Recovered/Not Resolved]
  - Hypogonadism male [Unknown]
  - Back pain [Unknown]
  - Radicular pain [Unknown]
  - Androgens abnormal [Unknown]
  - Libido decreased [Recovering/Resolving]
  - Erectile dysfunction [Recovering/Resolving]
  - Sexual dysfunction [Not Recovered/Not Resolved]
  - Seborrhoeic dermatitis [Unknown]
  - Nocturia [Unknown]
  - Feeling cold [Unknown]
  - Benign prostatic hyperplasia [Unknown]

NARRATIVE: CASE EVENT DATE: 20081008
